FAERS Safety Report 20137108 (Version 2)
Quarter: 2022Q2

REPORT INFORMATION
  Report Type: Spontaneous
  Country: CA (occurrence: CA)
  Receive Date: 20211201
  Receipt Date: 20220525
  Transmission Date: 20220721
  Serious: Yes (Other)
  Sender: FDA-Public Use
  Company Number: CA-PFIZER INC-2021581423

PATIENT
  Age: 55 Year
  Sex: Male
  Weight: 88.435 kg

DRUGS (1)
  1. LORBRENA [Suspect]
     Active Substance: LORLATINIB
     Indication: Non-small cell lung cancer metastatic
     Dosage: 100 MG, 1X/DAY
     Dates: start: 20210517

REACTIONS (9)
  - Weight increased [Unknown]
  - Loss of personal independence in daily activities [Recovering/Resolving]
  - Depression [Not Recovered/Not Resolved]
  - Balance disorder [Not Recovered/Not Resolved]
  - Gait disturbance [Recovered/Resolved]
  - Myalgia [Unknown]
  - Arthralgia [Unknown]
  - Pain [Unknown]
  - Discomfort [Unknown]
